FAERS Safety Report 4867280-X (Version None)
Quarter: 2005Q4

REPORT INFORMATION
  Report Type: 
  Country: None (occurrence: None)
  Receive Date: 20051228
  Receipt Date: 20051117
  Transmission Date: 20060501
  Serious: Yes (Hospitalization)
  Sender: FDA-Public Use
  Company Number: 2005UW17571

PATIENT
  Age: 23009 Day
  Sex: Female
  Weight: 95.9 kg

DRUGS (18)
  1. CRESTOR [Suspect]
     Route: 048
     Dates: start: 20050324, end: 20050819
  2. SYNTHROID [Concomitant]
  3. GLIPIZIDE [Concomitant]
  4. METFORMIN [Concomitant]
  5. ZOLOFT [Concomitant]
  6. TOPROL-XL [Concomitant]
  7. ZESTRIL [Concomitant]
  8. ASPIRIN [Concomitant]
  9. PLAVIX [Concomitant]
  10. NEXIUM [Concomitant]
  11. PROCRIT [Concomitant]
  12. NITRO [Concomitant]
  13. INDERAL [Concomitant]
  14. MULTI-VITAMIN [Concomitant]
  15. IRON [Concomitant]
  16. ADRIAMYCIN [Concomitant]
     Indication: BREAST CANCER
  17. CYTOXAN [Concomitant]
     Indication: BREAST CANCER
  18. TAXOL [Concomitant]
     Indication: BREAST CANCER

REACTIONS (3)
  - BLOOD CREATINE PHOSPHOKINASE INCREASED [None]
  - DIALYSIS [None]
  - MYALGIA [None]
